FAERS Safety Report 4382359-7 (Version None)
Quarter: 2004Q2

REPORT INFORMATION
  Report Type: 
  Country: None (occurrence: None)
  Receive Date: 20040621
  Receipt Date: 20040621
  Transmission Date: 20050107
  Serious: Yes (Hospitalization)
  Sender: FDA-Public Use
  Company Number: None

PATIENT
  Age: 45 Year
  Sex: Female
  Weight: 140.5 kg

DRUGS (2)
  1. DOXORUBICIN [Suspect]
     Indication: BREAST CANCER
     Dosage: 152MG Q 3 WKS INTRAVENOUS
     Route: 042
     Dates: start: 20040408, end: 20040611
  2. CYCLOPHOSPHAMIDE [Suspect]
     Indication: BREAST CANCER
     Dosage: 1520 MG Q 3 WKS INTRAVENOUS
     Route: 042
     Dates: start: 20040408, end: 20040611

REACTIONS (3)
  - DRUG TOXICITY [None]
  - FIBRIN D DIMER INCREASED [None]
  - PULMONARY EMBOLISM [None]
